FAERS Safety Report 23205626 (Version 1)
Quarter: 2023Q4

REPORT INFORMATION
  Report Type: Spontaneous
  Country: None (occurrence: GB)
  Receive Date: 20231120
  Receipt Date: 20231120
  Transmission Date: 20240110
  Serious: Yes (Other)
  Sender: FDA-Public Use
  Company Number: GB-B.Braun Medical Inc.-2148486

PATIENT
  Age: 74 Year
  Sex: Male

DRUGS (20)
  1. LIDOCAINE HYDROCHLORIDE [Suspect]
     Active Substance: DEXTROSE MONOHYDRATE\EPINEPHRINE\EPINEPHRINE BITARTRATE\LIDOCAINE\LIDOCAINE HYDROCHLORIDE\LIDOCAINE
  2. INTERFERON ALFA-2B [Concomitant]
     Active Substance: INTERFERON ALFA-2B
  3. FENPIVERINIUM BROMIDE [Concomitant]
     Active Substance: FENPIVERINIUM BROMIDE
  4. METAMIZOLE [Concomitant]
     Active Substance: METAMIZOLE
  5. PITOFENONE HYDROCHLORIDE [Concomitant]
  6. DEXAMETHASONE [Concomitant]
     Active Substance: DEXAMETHASONE
  7. SIMETHICONE (DIMETHICONE) [Concomitant]
     Active Substance: DIMETHICONE
  8. PANCREATIN [Concomitant]
     Active Substance: PANCRELIPASE
  9. OMEPRAZOLE [Concomitant]
     Active Substance: OMEPRAZOLE
  10. COTRIMOXAZOLE [Concomitant]
     Active Substance: SULFAMETHOXAZOLE\TRIMETHOPRIM
  11. ACYCLOVIR [Concomitant]
     Active Substance: ACYCLOVIR
  12. LOPERAMIDE [Concomitant]
     Active Substance: LOPERAMIDE
  13. METOCLOPRAMIDE [Concomitant]
     Active Substance: METOCLOPRAMIDE
  14. NINLARO [Concomitant]
     Active Substance: IXAZOMIB CITRATE
  15. REVLIMID [Concomitant]
     Active Substance: LENALIDOMIDE
  16. XARELTO [Concomitant]
     Active Substance: RIVAROXABAN
  17. CALCIUM CARBONATE\CHOLECALCIFEROL [Concomitant]
     Active Substance: CALCIUM CARBONATE\CHOLECALCIFEROL
  18. EPOETIN BETA [Concomitant]
     Active Substance: ERYTHROPOIETIN
  19. LENALIDOMIDE [Concomitant]
     Active Substance: LENALIDOMIDE
  20. RIVAROXABAN [Concomitant]
     Active Substance: RIVAROXABAN

REACTIONS (16)
  - Feeling cold [None]
  - Neutrophil count abnormal [None]
  - Chromaturia [None]
  - Gait disturbance [None]
  - Productive cough [None]
  - Hypoaesthesia [None]
  - Malaise [None]
  - Inappropriate schedule of product administration [None]
  - Balance disorder [None]
  - Pyrexia [None]
  - Limb discomfort [None]
  - Fall [None]
  - Cerebrovascular accident [None]
  - Confusional state [None]
  - Musculoskeletal chest pain [None]
  - Decreased appetite [None]
